FAERS Safety Report 18633525 (Version 4)
Quarter: 2024Q2

REPORT INFORMATION
  Report Type: Spontaneous
  Country: US (occurrence: US)
  Receive Date: 20201218
  Receipt Date: 20240524
  Transmission Date: 20240716
  Serious: No
  Sender: FDA-Public Use
  Company Number: US-SA-2020SA361040

PATIENT
  Sex: Female

DRUGS (1)
  1. DUPIXENT [Suspect]
     Active Substance: DUPILUMAB
     Indication: Dermatitis atopic
     Dosage: 300 MG, QOW
     Route: 058
     Dates: start: 20191218

REACTIONS (9)
  - Eyelid margin crusting [Unknown]
  - Pruritus [Recovering/Resolving]
  - Eye irritation [Recovering/Resolving]
  - Ocular hyperaemia [Recovering/Resolving]
  - Condition aggravated [Recovering/Resolving]
  - Drug hypersensitivity [Unknown]
  - Eye pruritus [Unknown]
  - Dry eye [Unknown]
  - Product dose omission in error [Unknown]
